FAERS Safety Report 4600943-X (Version None)
Quarter: 2005Q1

REPORT INFORMATION
  Report Type: 
  Country: None (occurrence: None)
  Receive Date: 20050127
  Receipt Date: 20041025
  Transmission Date: 20050727
  Serious: No
  Sender: FDA-Public Use
  Company Number: USA041082235

PATIENT
  Age: 14 Year
  Sex: Male
  Weight: 75 kg

DRUGS (2)
  1. STRATTERA [Suspect]
     Indication: ATTENTION DEFICIT/HYPERACTIVITY DISORDER
     Dosage: 60 MG DAY
     Dates: start: 20040918
  2. RITALIN [Concomitant]

REACTIONS (3)
  - DISTURBANCE IN ATTENTION [None]
  - DRUG INEFFECTIVE [None]
  - NERVOUSNESS [None]
